FAERS Safety Report 7339456-3 (Version None)
Quarter: 2011Q1

REPORT INFORMATION
  Report Type: 
  Country: None (occurrence: None)
  Receive Date: 20110308
  Receipt Date: 20110105
  Transmission Date: 20110831
  Serious: No
  Sender: FDA-Public Use
  Company Number: US-AMGEN-USASP2011000738

PATIENT
  Age: 52 Year
  Sex: Female

DRUGS (3)
  1. VITAMINS                           /90003601/ [Concomitant]
  2. ADVIL [Concomitant]
  3. PROLIA [Suspect]
     Indication: OSTEOPOROSIS POSTMENOPAUSAL
     Dates: start: 20101227

REACTIONS (3)
  - LABYRINTHITIS [None]
  - DIZZINESS [None]
  - NAUSEA [None]
